FAERS Safety Report 5498707-0 (Version None)
Quarter: 2007Q4

REPORT INFORMATION
  Report Type: 
  Country: None (occurrence: None)
  Receive Date: 20071024
  Receipt Date: 20071024
  Transmission Date: 20080405
  Serious: Yes (Hospitalization)
  Sender: FDA-Public Use
  Company Number: None

PATIENT
  Age: 80 Year
  Sex: Male

DRUGS (2)
  1. AMLODIPINE [Suspect]
     Indication: HYPERTENSION
     Dosage: 5MG EVERY DAY PO
     Route: 048
     Dates: start: 20070920, end: 20071016
  2. METOPROLOL [Suspect]
     Dosage: 50MG BID PO
     Route: 048
     Dates: start: 20060714, end: 20071016

REACTIONS (2)
  - BRADYCARDIA [None]
  - GASTROINTESTINAL HAEMORRHAGE [None]
